FAERS Safety Report 11935089 (Version 1)
Quarter: 2016Q1

REPORT INFORMATION
  Report Type: Spontaneous
  Country: CN (occurrence: CN)
  Receive Date: 20160121
  Receipt Date: 20160121
  Transmission Date: 20160526
  Serious: Yes (Other)
  Sender: FDA-Public Use
  Company Number: CN-PFIZER INC-2016029306

PATIENT
  Age: 8 Month
  Sex: Male
  Weight: 7.2 kg

DRUGS (1)
  1. SOLU-MEDROL [Suspect]
     Active Substance: METHYLPREDNISOLONE SODIUM SUCCINATE
     Indication: THROMBOCYTOPENIC PURPURA
     Dosage: 10 MG, 2X/DAY
     Route: 041
     Dates: start: 20150729, end: 20150802

REACTIONS (6)
  - Skin lesion [Recovered/Resolved]
  - Chills [Recovered/Resolved]
  - Pallor [Recovered/Resolved]
  - Restlessness [Recovered/Resolved]
  - Cyanosis [Recovered/Resolved]
  - Vomiting [Recovered/Resolved]

NARRATIVE: CASE EVENT DATE: 20150802
